FAERS Safety Report 8625103-7 (Version None)
Quarter: 2012Q3

REPORT INFORMATION
  Report Type: 
  Country: None (occurrence: None)
  Receive Date: 20120827
  Receipt Date: 20120821
  Transmission Date: 20120928
  Serious: Yes (Hospitalization)
  Sender: FDA-Public Use
  Company Number: US-GLAXOSMITHKLINE-A0990446A

PATIENT
  Age: 55 Year
  Sex: Female

DRUGS (13)
  1. LIPITOR [Suspect]
     Indication: PRODUCT USED FOR UNKNOWN INDICATION
     Route: 048
  2. METFORMIN HCL [Concomitant]
  3. CRESTOR [Suspect]
     Indication: PRODUCT USED FOR UNKNOWN INDICATION
     Route: 065
  4. PRAVACHOL [Suspect]
     Indication: PRODUCT USED FOR UNKNOWN INDICATION
     Route: 065
  5. CALCIUM [Concomitant]
  6. LOVAZA [Suspect]
     Indication: BLOOD TRIGLYCERIDES INCREASED
     Dosage: 4CAP PER DAY
     Route: 048
     Dates: start: 20080501
  7. TRILIPIX [Suspect]
     Indication: BLOOD TRIGLYCERIDES INCREASED
     Route: 065
  8. LISINOPRIL [Concomitant]
  9. ASPIRIN [Concomitant]
  10. FENOFIBRATE [Concomitant]
  11. METOPROLOL [Concomitant]
  12. PLAVIX [Concomitant]
  13. IMDUR [Concomitant]

REACTIONS (7)
  - MYOCARDIAL INFARCTION [None]
  - PAIN IN EXTREMITY [None]
  - VITAMIN D DEFICIENCY [None]
  - MUSCLE SPASMS [None]
  - MUSCLE ATROPHY [None]
  - LOW DENSITY LIPOPROTEIN INCREASED [None]
  - MUSCLE RUPTURE [None]
